FAERS Safety Report 8322370-4 (Version None)
Quarter: 2012Q2

REPORT INFORMATION
  Report Type: 
  Country: None (occurrence: None)
  Receive Date: 20120430
  Receipt Date: 20120423
  Transmission Date: 20120825
  Serious: Yes (Hospitalization)
  Sender: FDA-Public Use
  Company Number: GB-ELI_LILLY_AND_COMPANY-GB201101007067

PATIENT
  Sex: Female
  Weight: 62.7 kg

DRUGS (11)
  1. PRASUGREL HYDROCHLORIDE [Suspect]
     Indication: ACUTE CORONARY SYNDROME
     Dosage: UNK, UNK
     Route: 048
     Dates: start: 20101216, end: 20110126
  2. ENOXAPARIN [Concomitant]
     Dosage: 1 MG/KG, 2/D
  3. LANSOPRAZOLE [Concomitant]
     Indication: PROPHYLAXIS
     Dates: start: 20091007
  4. CANDESARTAN CILEXETIL [Concomitant]
     Indication: PROPHYLAXIS
     Dates: start: 20101210
  5. HYPROMELLOSE [Concomitant]
     Indication: PROPHYLAXIS
     Dates: start: 19950803
  6. AMLODIPINE [Concomitant]
     Indication: PROPHYLAXIS
     Dosage: UNK
     Dates: start: 20101210, end: 20110201
  7. ATORVASTATIN [Concomitant]
     Indication: HYPERLIPIDAEMIA
     Dates: start: 20011023
  8. NITROGLYCERIN [Concomitant]
     Indication: MYOCARDIAL ISCHAEMIA
     Dates: start: 19951214
  9. ACETAMINOPHEN [Concomitant]
     Indication: PROPHYLAXIS
     Dosage: UNK
     Dates: start: 19800101
  10. BENDROFLUMETHIAZIDE [Concomitant]
     Indication: HYPERTENSION
     Dosage: UNK
     Dates: start: 20041229, end: 20110118
  11. METOPROLOL TARTRATE [Concomitant]
     Indication: HYPERTENSION
     Dosage: UNK
     Dates: start: 19740101, end: 20110201

REACTIONS (3)
  - MYOCARDIAL ISCHAEMIA [None]
  - DYSPEPSIA [None]
  - RECTAL HAEMORRHAGE [None]
